FAERS Safety Report 19922947 (Version 1)
Quarter: 2021Q4

REPORT INFORMATION
  Report Type: Spontaneous
  Country: US (occurrence: US)
  Receive Date: 20211006
  Receipt Date: 20211006
  Transmission Date: 20220303
  Serious: No
  Sender: FDA-Public Use
  Company Number: None

PATIENT

DRUGS (2)
  1. CASIRIVIMAB [Suspect]
     Active Substance: CASIRIVIMAB
  2. IMDEVIMAB [Suspect]
     Active Substance: IMDEVIMAB

REACTIONS (4)
  - Product barcode issue [None]
  - Product identification number issue [None]
  - Product packaging confusion [None]
  - Product label confusion [None]
